FAERS Safety Report 17826571 (Version 7)
Quarter: 2023Q4

REPORT INFORMATION
  Report Type: Spontaneous
  Country: PL (occurrence: PL)
  Receive Date: 20200527
  Receipt Date: 20231221
  Transmission Date: 20240110
  Serious: Yes (Hospitalization, Disabling, Other)
  Sender: FDA-Public Use
  Company Number: PL-SUN PHARMACEUTICAL INDUSTRIES LTD-2020RR-248263

PATIENT
  Age: 32 Year
  Sex: Male

DRUGS (23)
  1. ESCITALOPRAM [Interacting]
     Active Substance: ESCITALOPRAM OXALATE
     Indication: Depression
     Dosage: IN THE MORNING
     Route: 065
  2. ESCITALOPRAM [Interacting]
     Active Substance: ESCITALOPRAM OXALATE
     Dosage: IN THE MORNING
     Route: 065
  3. ESOMEPRAZOLE [Interacting]
     Active Substance: ESOMEPRAZOLE
     Indication: Abdominal pain upper
     Dosage: 40 MILLIGRAM, DAILY
     Route: 065
  4. DEXTROMETHORPHAN [Interacting]
     Active Substance: DEXTROMETHORPHAN
     Indication: Antitussive therapy
     Dosage: ()
     Route: 065
  5. DEXTROMETHORPHAN [Interacting]
     Active Substance: DEXTROMETHORPHAN
     Dosage: ()
     Route: 065
  6. DEXTROMETHORPHAN [Interacting]
     Active Substance: DEXTROMETHORPHAN
     Dosage: ()
     Route: 065
  7. DEXTROMETHORPHAN [Interacting]
     Active Substance: DEXTROMETHORPHAN
     Dosage: ()
     Route: 065
  8. DEXTROMETHORPHAN [Interacting]
     Active Substance: DEXTROMETHORPHAN
     Dosage: ()
     Route: 065
  9. ACETAMINOPHEN\CHLORPHENIRAMINE MALEATE\PSEUDOEPHEDRINE [Interacting]
     Active Substance: ACETAMINOPHEN\CHLORPHENIRAMINE MALEATE\PSEUDOEPHEDRINE
     Indication: Upper respiratory tract infection
     Dosage: ()
     Route: 065
  10. ACETAMINOPHEN\CHLORPHENIRAMINE MALEATE\PSEUDOEPHEDRINE [Interacting]
     Active Substance: ACETAMINOPHEN\CHLORPHENIRAMINE MALEATE\PSEUDOEPHEDRINE
     Dosage: ()
     Route: 065
  11. ACETAMINOPHEN\CHLORPHENIRAMINE MALEATE\PSEUDOEPHEDRINE [Interacting]
     Active Substance: ACETAMINOPHEN\CHLORPHENIRAMINE MALEATE\PSEUDOEPHEDRINE
     Dosage: ()
     Route: 065
  12. ACETAMINOPHEN\CHLORPHENIRAMINE MALEATE\PSEUDOEPHEDRINE [Interacting]
     Active Substance: ACETAMINOPHEN\CHLORPHENIRAMINE MALEATE\PSEUDOEPHEDRINE
     Dosage: ()
     Route: 065
  13. PROMETHAZINE [Interacting]
     Active Substance: PROMETHAZINE HYDROCHLORIDE
     Indication: Cough
     Dosage: 150 MILLIGRAM, DAILY, 3X 50 MG
     Route: 065
  14. PROMETHAZINE [Interacting]
     Active Substance: PROMETHAZINE HYDROCHLORIDE
     Dosage: 150 MILLIGRAM
     Route: 065
  15. PROMETHAZINE [Interacting]
     Active Substance: PROMETHAZINE HYDROCHLORIDE
     Dosage: 150 MILLIGRAM
     Route: 065
  16. METAMIZOLE [Suspect]
     Active Substance: METAMIZOLE
     Indication: Pyrexia
     Dosage: UNK
     Route: 065
  17. METAMIZOLE [Suspect]
     Active Substance: METAMIZOLE
     Indication: Pyrexia
  18. PERAZINE [Interacting]
     Active Substance: PERAZINE
     Indication: Sleep disorder
     Dosage: IN THE EVENING
     Route: 065
  19. PERAZINE [Interacting]
     Active Substance: PERAZINE
     Dosage: 50 MILLIGRAM
     Route: 065
  20. PERAZINE [Interacting]
     Active Substance: PERAZINE
     Dosage: 50 MILLIGRAM
     Route: 065
  21. PERAZINE [Interacting]
     Active Substance: PERAZINE
     Dosage: 50 MILLIGRAM
     Route: 065
  22. PERAZINE [Interacting]
     Active Substance: PERAZINE
     Dosage: 50 MILLIGRAM
     Route: 065
  23. CYPROHEPTADINE [Concomitant]
     Active Substance: CYPROHEPTADINE
     Indication: Serotonin syndrome
     Route: 065

REACTIONS (19)
  - Drug interaction [Recovered/Resolved]
  - Upper respiratory tract infection [Recovered/Resolved]
  - Serotonin syndrome [Recovered/Resolved]
  - Labelled drug-drug interaction medication error [Recovered/Resolved]
  - Abdominal pain upper [Recovered/Resolved]
  - Sedation [Recovered/Resolved]
  - Drug level increased [Recovered/Resolved]
  - Diarrhoea [Recovered/Resolved]
  - Nasal congestion [Recovering/Resolving]
  - Drug ineffective [Recovered/Resolved]
  - Restless legs syndrome [Recovered/Resolved]
  - Respiratory rate increased [Recovered/Resolved]
  - Pyrexia [Recovering/Resolving]
  - Cough [Recovering/Resolving]
  - Product use in unapproved indication [Unknown]
  - Condition aggravated [Recovered/Resolved]
  - Abdominal pain [Recovered/Resolved]
  - Hyperhidrosis [Recovered/Resolved]
  - Clonus [Recovered/Resolved]
